FAERS Safety Report 9234048 (Version 3)
Quarter: 2013Q2

REPORT INFORMATION
  Report Type: Report from Study
  Country: FR (occurrence: FR)
  Receive Date: 20130416
  Receipt Date: 20130520
  Transmission Date: 20140414
  Serious: Yes (Other)
  Sender: FDA-Public Use
  Company Number: FR-AMGEN-FRACT2013025855

PATIENT
  Age: 63 Year
  Sex: Male
  Weight: 62 kg

DRUGS (19)
  1. PANITUMUMAB [Suspect]
     Indication: GASTROOESOPHAGEAL CANCER
     Dosage: 418 MG, UNK
     Route: 042
     Dates: start: 20120920, end: 20121030
  2. FOLINIC ACID [Concomitant]
     Indication: GASTROOESOPHAGEAL CANCER
     Dosage: 350 MG, UNK
     Route: 042
     Dates: start: 20120920, end: 20121030
  3. OXALIPLATIN [Concomitant]
     Indication: GASTROOESOPHAGEAL CANCER
     Dosage: 167 MG, UNK
     Route: 042
     Dates: start: 20120920, end: 20121030
  4. 5-FLUOROURACIL [Concomitant]
     Indication: GASTROOESOPHAGEAL CANCER
     Dosage: UNK
     Route: 042
     Dates: start: 20120920, end: 20121101
  5. INEXIUM [Concomitant]
     Dosage: 40 MG, QD
     Dates: start: 20121010
  6. LOVENOX [Concomitant]
     Dosage: UNK UNK, QD
     Route: 058
     Dates: start: 20121010
  7. OTHER NUTRIENTS [Concomitant]
     Dosage: UNK UNK, TID
     Dates: start: 20121010
  8. XANTRAL [Concomitant]
     Dosage: 100 MG, QD
     Route: 048
     Dates: start: 20121010
  9. FUNGIZONE [Concomitant]
     Dosage: UNK UNK, TID
     Route: 048
     Dates: start: 20121010
  10. PERFALGAN [Concomitant]
     Dosage: 1 G, TID
     Route: 042
     Dates: start: 20121010
  11. ULCAR [Concomitant]
     Dosage: 1 G, BID
     Route: 048
     Dates: start: 20121010
  12. PRIMPERAN [Concomitant]
     Dosage: UNK UNK, TID
     Route: 042
     Dates: start: 20121017
  13. I.V. SOLUTIONS [Concomitant]
     Dosage: UNK UNK, QD
     Route: 042
     Dates: start: 20121019
  14. TRACITRANS PLUS [Concomitant]
  15. CERNEVIT [Concomitant]
  16. NOVORAPID [Concomitant]
  17. VENOFER [Concomitant]
     Dosage: 200 MG, UNK
     Dates: start: 20121015
  18. EPREX [Concomitant]
     Dosage: UNK
     Route: 051
     Dates: start: 20121022
  19. BLOOD TRANSFUSION, AUXILIARY PRODUCTS [Concomitant]
     Dosage: UNK
     Dates: start: 20121013

REACTIONS (1)
  - Anaemia [Not Recovered/Not Resolved]
